FAERS Safety Report 9555174 (Version 1)
Quarter: 2013Q3

REPORT INFORMATION
  Report Type: Spontaneous
  Country: US (occurrence: None)
  Receive Date: 20130724
  Receipt Date: 20130724
  Transmission Date: 20140515
  Serious: Yes (Other)
  Sender: FDA-Public Use
  Company Number: PHEH2013US005824

PATIENT
  Age: 32 Year
  Sex: Male
  Weight: 77.1 kg

DRUGS (1)
  1. GILENYA (FINGOLIMID) CAPSULE, 0.5MG [Suspect]
     Indication: MULTIPLE SCLEROSIS
     Route: 048
     Dates: start: 20121211

REACTIONS (4)
  - Skin discolouration [None]
  - Inappropriate schedule of drug administration [None]
  - Oedema peripheral [None]
  - Hepatic enzyme increased [None]
